FAERS Safety Report 7141298-9 (Version None)
Quarter: 2010Q4

REPORT INFORMATION
  Report Type: 
  Country: None (occurrence: None)
  Receive Date: 20101207
  Receipt Date: 20101202
  Transmission Date: 20110411
  Serious: Yes (Death, Other)
  Sender: FDA-Public Use
  Company Number: KW-BRISTOL-MYERS SQUIBB COMPANY-15411044

PATIENT
  Age: 8 Year
  Sex: Male

DRUGS (3)
  1. CISPLATIN [Suspect]
     Indication: BONE SARCOMA
     Dosage: 1DF=720MG/M SUP(2)
  2. DOXORUBICIN HCL [Suspect]
     Indication: BONE SARCOMA
     Dosage: 1 DF = 450MG/M SUP(2)
  3. METHOTREXATE [Suspect]
     Indication: BONE SARCOMA
     Dosage: 1 DF = 144MG/M SUP(2)

REACTIONS (2)
  - ACUTE MYELOID LEUKAEMIA [None]
  - PULMONARY HAEMORRHAGE [None]
